FAERS Safety Report 8585997-0 (Version None)
Quarter: 2012Q3

REPORT INFORMATION
  Report Type: 
  Country: None (occurrence: None)
  Receive Date: 20120810
  Receipt Date: 20120802
  Transmission Date: 20120928
  Serious: Yes (Death, Other)
  Sender: FDA-Public Use
  Company Number: FR-ROCHE-1016241

PATIENT
  Age: 66 Year
  Sex: Male

DRUGS (8)
  1. VINCRISTINE [Concomitant]
  2. FLUDARABINE PHOSPHATE [Suspect]
     Indication: LYMPHOMA
  3. VALACYCLOVIR HYDROCHLORIDE [Concomitant]
     Indication: PROPHYLAXIS
  4. PREDNISONE TAB [Concomitant]
  5. DOXORUBICIN HYDROCHLORIDE [Concomitant]
  6. MABTHERA [Suspect]
     Indication: LYMPHOMA
     Route: 042
     Dates: start: 20110207, end: 20120620
  7. CYCLOPHOSPHAMIDE [Suspect]
     Indication: LYMPHOMA
     Dates: end: 20120620
  8. BACTRIM [Concomitant]
     Indication: PROPHYLAXIS

REACTIONS (2)
  - AGRANULOCYTOSIS [None]
  - PROGRESSIVE MULTIFOCAL LEUKOENCEPHALOPATHY [None]
